FAERS Safety Report 4949072-6 (Version None)
Quarter: 2006Q1

REPORT INFORMATION
  Report Type: 
  Country: None (occurrence: None)
  Receive Date: 20060316
  Receipt Date: 20060306
  Transmission Date: 20060701
  Serious: Yes (Other)
  Sender: FDA-Public Use
  Company Number: 2006033738

PATIENT
  Sex: Female
  Weight: 81.6475 kg

DRUGS (6)
  1. ZYRTEC [Suspect]
     Indication: MULTIPLE ALLERGIES
     Dosage: (2 IN 1 D), ORAL
     Route: 048
  2. ZYRTEC-D 12 HOUR [Suspect]
     Indication: MULTIPLE ALLERGIES
     Dosage: (2 IN 1 D), ORAL
     Route: 048
  3. BENICAR [Suspect]
     Indication: HYPERTENSION
     Dosage: ORAL
     Route: 048
  4. LEVOTHROID [Concomitant]
  5. SYNTHROID [Concomitant]
  6. PREVACID [Concomitant]

REACTIONS (8)
  - ASTHMA [None]
  - DRUG INEFFECTIVE [None]
  - DYSPNOEA [None]
  - EMPHYSEMA [None]
  - HYPOTENSION [None]
  - INSOMNIA [None]
  - MULTIPLE ALLERGIES [None]
  - NEUROMYOPATHY [None]
